FAERS Safety Report 10044880 (Version 1)
Quarter: 2014Q1

REPORT INFORMATION
  Report Type: Spontaneous
  Country: FR (occurrence: FR)
  Receive Date: 20140328
  Receipt Date: 20140328
  Transmission Date: 20141002
  Serious: Yes (Hospitalization, Other)
  Sender: FDA-Public Use
  Company Number: FR-PFIZER INC-2014085398

PATIENT
  Age: 77 Year
  Sex: Male
  Weight: 53 kg

DRUGS (5)
  1. NEURONTIN [Suspect]
     Indication: CRITICAL ILLNESS POLYNEUROPATHY
     Dosage: 300 MG, DAILY
     Route: 048
     Dates: start: 20140124, end: 20140217
  2. LIORESAL [Suspect]
     Dosage: 1 DF, 2X/DAY
     Route: 048
     Dates: start: 20140205, end: 20140217
  3. ROVALCYTE [Concomitant]
     Dosage: 450 MG/48H
     Route: 048
  4. INEXIUM /01479302/ [Concomitant]
  5. SEROPRAM [Concomitant]

REACTIONS (3)
  - Hepatocellular injury [Recovering/Resolving]
  - Cytomegalovirus duodenitis [Unknown]
  - Shock haemorrhagic [Unknown]
